FAERS Safety Report 6902564-2 (Version None)
Quarter: 2010Q3

REPORT INFORMATION
  Report Type: 
  Country: None (occurrence: None)
  Receive Date: 20100803
  Receipt Date: 20080530
  Transmission Date: 20110219
  Serious: No
  Sender: FDA-Public Use
  Company Number: US-PFIZER INC-2008037460

PATIENT
  Age: 42 Year
  Sex: Female
  Weight: 68.9 kg

DRUGS (6)
  1. LYRICA [Suspect]
     Indication: FIBROMYALGIA
     Route: 048
     Dates: start: 20070601, end: 20080303
  2. XANAX [Concomitant]
     Dates: start: 20070924
  3. VITAMIN D [Concomitant]
     Dates: start: 20070813
  4. LEXAPRO [Concomitant]
     Dates: start: 20070924
  5. SIMVASTATIN [Concomitant]
     Dates: start: 20070924
  6. FOSAMAX [Concomitant]
     Dates: start: 20071018

REACTIONS (1)
  - WEIGHT INCREASED [None]
